FAERS Safety Report 5225847-3 (Version None)
Quarter: 2007Q1

REPORT INFORMATION
  Report Type: 
  Country: None (occurrence: None)
  Receive Date: 20070201
  Receipt Date: 20060126
  Transmission Date: 20070707
  Serious: Yes (Death)
  Sender: FDA-Public Use
  Company Number: US-JNJFOC-20060703774

PATIENT
  Age: 49 Year
  Sex: Female

DRUGS (2)
  1. TYLENOL [Suspect]
  2. TYLENOL [Suspect]
     Indication: THERMAL BURN

REACTIONS (2)
  - ADVERSE DRUG REACTION [None]
  - HEPATIC FUNCTION ABNORMAL [None]
